FAERS Safety Report 6545307-7 (Version None)
Quarter: 2010Q1

REPORT INFORMATION
  Report Type: 
  Country: None (occurrence: None)
  Receive Date: 20100121
  Receipt Date: 20100114
  Transmission Date: 20100710
  Serious: Yes (Death, Hospitalization)
  Sender: FDA-Public Use
  Company Number: FR-TEVA-215256ISR

PATIENT
  Sex: Male

DRUGS (4)
  1. FLUOROURACIL [Suspect]
     Indication: GASTRIC CANCER
     Route: 041
     Dates: start: 20071213
  2. FLUOROURACIL [Suspect]
     Route: 040
     Dates: start: 20071213
  3. IRINOTECAN HCL [Suspect]
     Indication: GASTRIC CANCER
     Dates: start: 20071213
  4. FOLINIC ACID [Suspect]
     Indication: GASTRIC CANCER
     Route: 040
     Dates: start: 20071213

REACTIONS (4)
  - ASCITES [None]
  - DISEASE PROGRESSION [None]
  - GASTRIC CANCER [None]
  - RENAL FAILURE ACUTE [None]
